FAERS Safety Report 23429831 (Version 2)
Quarter: 2024Q1

REPORT INFORMATION
  Report Type: Spontaneous
  Country: JP (occurrence: JP)
  Receive Date: 20240122
  Receipt Date: 20240208
  Transmission Date: 20240410
  Serious: Yes (Hospitalization, Other)
  Sender: FDA-Public Use
  Company Number: JP-MSD-2401JPN002012J

PATIENT
  Age: 74 Year
  Sex: Male
  Weight: 63 kg

DRUGS (20)
  1. JANUVIA [Suspect]
     Active Substance: SITAGLIPTIN PHOSPHATE
     Indication: Diabetes mellitus
     Dosage: 25 MILLIGRAM, QD
     Route: 048
     Dates: start: 20231207, end: 20231221
  2. JANUVIA [Suspect]
     Active Substance: SITAGLIPTIN PHOSPHATE
     Dosage: 50 MILLIGRAM, QD
     Route: 048
     Dates: start: 20231222
  3. JANUVIA [Suspect]
     Active Substance: SITAGLIPTIN PHOSPHATE
     Dosage: 1000 MILLIGRAM, BID
     Route: 048
     Dates: start: 20240106
  4. PIMITESPIB [Suspect]
     Active Substance: PIMITESPIB
     Indication: Prostate cancer
     Dosage: 160.0 MILLIGRAM, QD
     Route: 048
     Dates: start: 20231013, end: 20231013
  5. PIMITESPIB [Suspect]
     Active Substance: PIMITESPIB
     Dosage: 160.0 MILLIGRAM, QD, 5 DAYS ON, 2 DAYS OFF
     Route: 048
     Dates: start: 20231016
  6. ENZALUTAMIDE [Suspect]
     Active Substance: ENZALUTAMIDE
     Indication: Prostate cancer
     Dosage: 160.0 MILLIGRAM, QD
     Route: 048
     Dates: start: 20231016
  7. OFLOXACIN [Concomitant]
     Active Substance: OFLOXACIN
     Indication: Otitis externa
     Dosage: UNK UNK, PRN
     Route: 061
     Dates: start: 202210
  8. PREDNISOLONE [Concomitant]
     Active Substance: PREDNISOLONE
     Dosage: 5.0 MILLIGRAM, QD
     Route: 048
     Dates: start: 20230609, end: 20230928
  9. PREDNISOLONE [Concomitant]
     Active Substance: PREDNISOLONE
     Dosage: 2.5 MILLIGRAM, QD
     Route: 048
     Dates: start: 20230929, end: 20231113
  10. PREDNISOLONE [Concomitant]
     Active Substance: PREDNISOLONE
     Dosage: 1.0 MILLIGRAM, QD
     Route: 048
     Dates: start: 20231114
  11. LANSOPRAZOLE [Concomitant]
     Active Substance: LANSOPRAZOLE
     Indication: Gastritis prophylaxis
     Dosage: 15.0 MILLIGRAM, QD
     Route: 048
     Dates: start: 20230929
  12. LOXOPROFEN SODIUM [Concomitant]
     Active Substance: LOXOPROFEN SODIUM
     Indication: Arthralgia
     Dosage: 100.0 MILLIGRAM, QD
     Route: 062
     Dates: start: 20230511
  13. EZETIMIBE [Concomitant]
     Active Substance: EZETIMIBE
     Indication: Dyslipidaemia
     Dosage: 10.0 MILLIGRAM, QD
     Route: 048
     Dates: start: 202109
  14. TAMSULOSIN HYDROCHLORIDE [Concomitant]
     Active Substance: TAMSULOSIN HYDROCHLORIDE
     Indication: Dysuria
     Dosage: 0.4 MILLIGRAM, BID
     Route: 048
     Dates: start: 202109, end: 20231126
  15. PIRENOXINE [Concomitant]
     Active Substance: PIRENOXINE
     Indication: Dysuria
     Dosage: UNK UNK, PRN
     Route: 047
     Dates: start: 202210
  16. CYANOCOBALAMIN [Concomitant]
     Active Substance: CYANOCOBALAMIN
     Indication: Cataract
     Dosage: UNK UNK, PRN
     Route: 047
     Dates: start: 202210
  17. BETAMETHASONE SODIUM PHOSPHATE [Concomitant]
     Active Substance: BETAMETHASONE SODIUM PHOSPHATE
     Indication: Otitis externa
     Dosage: UNK UNK, PRN
     Route: 061
     Dates: start: 202210
  18. SODIUM GUALENATE MONOHYDRATE [Concomitant]
     Active Substance: SODIUM GUALENATE MONOHYDRATE
     Indication: Stomatitis
     Dosage: UNK UNK, PRN
     Route: 065
     Dates: start: 20231128
  19. BILASTINE [Concomitant]
     Active Substance: BILASTINE
     Indication: Otitis externa
     Dosage: 20.0 MILLIGRAM, QD
     Route: 048
     Dates: start: 20231005
  20. RINDERON VG [Concomitant]
     Active Substance: BETAMETHASONE VALERATE\GENTAMICIN SULFATE
     Indication: Otitis externa
     Dosage: UNK UNK, PRN
     Route: 061
     Dates: start: 20231005

REACTIONS (4)
  - Diabetes mellitus [Recovering/Resolving]
  - Underdose [Unknown]
  - Overdose [Unknown]
  - Product use issue [Unknown]

NARRATIVE: CASE EVENT DATE: 20231207
